FAERS Safety Report 13227594 (Version 1)
Quarter: 2017Q1

REPORT INFORMATION
  Report Type: Report from Study
  Country: DE (occurrence: DE)
  Receive Date: 20170213
  Receipt Date: 20170213
  Transmission Date: 20170428
  Serious: Yes (Other)
  Sender: FDA-Public Use
  Company Number: DE-MYLANLABS-2017M1008145

PATIENT

DRUGS (3)
  1. AZACITIDINE. [Suspect]
     Active Substance: AZACITIDINE
     Indication: ACUTE MYELOID LEUKAEMIA
     Dosage: 37.5 MG/SQM; DAYS 25 TO 21 AS OVER 30MINUTES
     Route: 041
  2. DAUNORUBICIN [Suspect]
     Active Substance: DAUNORUBICIN
     Indication: ACUTE MYELOID LEUKAEMIA
     Dosage: 45 MG/SQM ON DAYS 3-5
     Route: 041
  3. CYTARABINE. [Suspect]
     Active Substance: CYTARABINE
     Indication: ACUTE MYELOID LEUKAEMIA
     Dosage: 100 MG/SQM ON DAYS 1-7
     Route: 041

REACTIONS (2)
  - Dermatitis allergic [Recovered/Resolved]
  - Febrile neutropenia [Recovered/Resolved]
